FAERS Safety Report 8290271-6 (Version None)
Quarter: 2012Q2

REPORT INFORMATION
  Report Type: 
  Country: None (occurrence: None)
  Receive Date: 20120417
  Receipt Date: 20120402
  Transmission Date: 20120825
  Serious: Yes (Hospitalization, Other)
  Sender: FDA-Public Use
  Company Number: US-WATSON-2012-05918

PATIENT
  Sex: Male
  Weight: 78.912 kg

DRUGS (5)
  1. FENTANYL-25 [Suspect]
     Indication: BACK PAIN
     Dosage: 1 PATCH, Q72H
     Route: 062
     Dates: start: 20110101, end: 20110201
  2. FENTANYL-50 [Suspect]
     Indication: BACK PAIN
     Dosage: 1 PATCH, Q72H
     Route: 062
     Dates: start: 20110201, end: 20110301
  3. FENTANYL-75 [Suspect]
     Indication: BACK PAIN
     Dosage: 1 PATCH, Q72H
     Route: 062
     Dates: start: 20110301, end: 20110701
  4. FENTANYL-75 [Suspect]
     Dosage: 1 PATCH, Q72H
     Route: 062
     Dates: start: 20110301, end: 20110701
  5. LORAZEPAM [Concomitant]
     Indication: ANXIETY
     Dosage: 0.5 MG, DAILY

REACTIONS (5)
  - DECREASED APPETITE [None]
  - DEHYDRATION [None]
  - MALNUTRITION [None]
  - WEIGHT DECREASED [None]
  - DRUG INEFFECTIVE [None]
